FAERS Safety Report 4691099-6 (Version None)
Quarter: 2005Q2

REPORT INFORMATION
  Report Type: 
  Country: None (occurrence: None)
  Receive Date: 20050610
  Receipt Date: 20050530
  Transmission Date: 20051028
  Serious: Yes (Other)
  Sender: FDA-Public Use
  Company Number: 2005082754

PATIENT
  Sex: Female

DRUGS (2)
  1. NARDIL [Suspect]
     Indication: DEPRESSION
     Dosage: ORAL
     Route: 048
  2. SINEQUAN [Suspect]
     Indication: DEPRESSION

REACTIONS (2)
  - BLADDER CANCER [None]
  - COLON CANCER [None]
